FAERS Safety Report 11269319 (Version 3)
Quarter: 2015Q3

REPORT INFORMATION
  Report Type: Report from Study
  Country: ES (occurrence: ES)
  Receive Date: 20150714
  Receipt Date: 20150803
  Transmission Date: 20151125
  Serious: Yes (Life-Threatening, Hospitalization)
  Sender: FDA-Public Use
  Company Number: ES-ROCHE-1606784

PATIENT
  Age: 60 Year
  Sex: Female

DRUGS (10)
  1. PREDNISONA [Concomitant]
     Active Substance: PREDNISONE
     Route: 048
     Dates: start: 20070901, end: 20150609
  2. INDOMETACINA [Concomitant]
     Route: 048
     Dates: start: 200701
  3. PARACETAMOL [Concomitant]
     Active Substance: ACETAMINOPHEN
     Route: 048
     Dates: start: 20091216
  4. METHOTREXATE [Concomitant]
     Active Substance: METHOTREXATE
     Route: 048
     Dates: start: 20070901
  5. LEDERFOLIN [Concomitant]
     Active Substance: LEUCOVORIN CALCIUM
     Route: 048
     Dates: start: 20070901
  6. CLOTIAZEPAM [Concomitant]
     Active Substance: CLOTIAZEPAM
     Route: 048
     Dates: start: 20120125
  7. TOCILIZUMAB [Suspect]
     Active Substance: TOCILIZUMAB
     Indication: RHEUMATOID ARTHRITIS
     Dosage: MONTHLY DOSE 8 MG
     Route: 042
     Dates: start: 20140104
  8. LEDERFOLIN [Concomitant]
     Active Substance: LEUCOVORIN CALCIUM
     Route: 048
     Dates: start: 20070101, end: 20141009
  9. OMEPRAZOL [Concomitant]
     Active Substance: OMEPRAZOLE
     Route: 048
     Dates: start: 20070901
  10. OMEPRAZOL [Concomitant]
     Active Substance: OMEPRAZOLE
     Route: 048
     Dates: start: 20091216

REACTIONS (2)
  - Ischaemic stroke [Recovered/Resolved]
  - Polycythaemia [Unknown]

NARRATIVE: CASE EVENT DATE: 20141214
